FAERS Safety Report 18953547 (Version 2)
Quarter: 2021Q1

REPORT INFORMATION
  Report Type: Report from Study
  Country: None (occurrence: US)
  Receive Date: 20210301
  Receipt Date: 20210331
  Transmission Date: 20210420
  Serious: Yes (Hospitalization, Other)
  Sender: FDA-Public Use
  Company Number: US-ABBVIE-21K-163-3759728-00

PATIENT
  Age: 56 Year
  Sex: Female
  Weight: 61.29 kg

DRUGS (10)
  1. VITAMIN D2 [Concomitant]
     Active Substance: ERGOCALCIFEROL
     Indication: PRODUCT USED FOR UNKNOWN INDICATION
  2. CLOBETASOL [Concomitant]
     Active Substance: CLOBETASOL
     Indication: PRODUCT USED FOR UNKNOWN INDICATION
     Dosage: EMOLLIENT
  3. SKYRIZI [Suspect]
     Active Substance: RISANKIZUMAB-RZAA
     Indication: PSORIASIS
     Dosage: WEEK 0
     Route: 058
     Dates: start: 20210104, end: 20210104
  4. SKYRIZI [Suspect]
     Active Substance: RISANKIZUMAB-RZAA
     Indication: PSORIASIS
     Dosage: WEEK 4
     Route: 058
     Dates: start: 20210203, end: 20210203
  5. SYNTHROID [Concomitant]
     Active Substance: LEVOTHYROXINE SODIUM
     Indication: PRODUCT USED FOR UNKNOWN INDICATION
  6. VITAMIN B12 [Concomitant]
     Active Substance: CYANOCOBALAMIN
     Indication: PRODUCT USED FOR UNKNOWN INDICATION
  7. CALCIUM CITRATE PLUS [Concomitant]
     Indication: PRODUCT USED FOR UNKNOWN INDICATION
  8. SKYRIZI [Suspect]
     Active Substance: RISANKIZUMAB-RZAA
     Dosage: WEEK 12
     Route: 058
     Dates: start: 2021
  9. PREMARIN [Concomitant]
     Active Substance: ESTROGENS, CONJUGATED
     Indication: PRODUCT USED FOR UNKNOWN INDICATION
     Dosage: CREAM/APPL
  10. CYCLOBENZAPRINE HCL [Concomitant]
     Active Substance: CYCLOBENZAPRINE HYDROCHLORIDE
     Indication: PRODUCT USED FOR UNKNOWN INDICATION

REACTIONS (7)
  - Stomatitis [Not Recovered/Not Resolved]
  - Pelvic mass [Not Recovered/Not Resolved]
  - Musculoskeletal discomfort [Not Recovered/Not Resolved]
  - Neoplasm malignant [Unknown]
  - Limb discomfort [Not Recovered/Not Resolved]
  - Cellulitis [Recovering/Resolving]
  - Inflammatory marker increased [Not Recovered/Not Resolved]

NARRATIVE: CASE EVENT DATE: 20210109
